FAERS Safety Report 10027885 (Version 1)
Quarter: 2014Q1

REPORT INFORMATION
  Report Type: Spontaneous
  Country: US (occurrence: None)
  Receive Date: 20140221
  Receipt Date: 20140221
  Transmission Date: 20141002
  Serious: Yes (Hospitalization)
  Sender: FDA-Public Use
  Company Number: BR12-352-AE

PATIENT
  Age: 41 Year
  Sex: Female
  Weight: 117.94 kg

DRUGS (5)
  1. OXY / APAP [Suspect]
     Indication: INFLAMMATION
     Dosage: 1 TABLET
     Route: 048
  2. OXY / APAP [Suspect]
     Indication: BACK DISORDER
     Dosage: 1 TABLET
     Route: 048
  3. GABAPENTIN [Concomitant]
  4. SIMVAVSTATIN [Concomitant]
  5. MESOTONIN [Concomitant]

REACTIONS (9)
  - Abdominal pain upper [None]
  - Chills [None]
  - Swelling [None]
  - Drug ineffective [None]
  - Migraine [None]
  - Abdominal pain upper [None]
  - Pyrexia [None]
  - Lethargy [None]
  - Feeling abnormal [None]
